FAERS Safety Report 17903344 (Version 1)
Quarter: 2020Q2

REPORT INFORMATION
  Report Type: Other
  Country: DE (occurrence: DE)
  Receive Date: 20200617
  Receipt Date: 20200617
  Transmission Date: 20200714
  Serious: Yes (Death, Hospitalization)
  Sender: FDA-Public Use
  Company Number: DE-CELLTRION INC.-2020DE023306

PATIENT

DRUGS (12)
  1. BISOPROLOL [Concomitant]
     Active Substance: BISOPROLOL
     Dosage: 5 MG, 1-0-0-0
  2. PANTOPRAZOL [Concomitant]
     Active Substance: PANTOPRAZOLE SODIUM
     Dosage: 40 MG, 1-0-0-0
  3. TRASTUZUMAB (UNKNOWN) [Suspect]
     Active Substance: TRASTUZUMAB
  4. CARBOPLATIN. [Suspect]
     Active Substance: CARBOPLATIN
  5. EPOETIN [Concomitant]
     Active Substance: ERYTHROPOIETIN
     Dosage: 1000 IE
     Route: 058
  6. TORASEMID [Concomitant]
     Active Substance: TORSEMIDE
     Dosage: 5 MG, 1-0-0-0
  7. ALLOPURINOL. [Concomitant]
     Active Substance: ALLOPURINOL
     Dosage: 100 MG, 1-0-0-0
  8. LAPATINIB [Suspect]
     Active Substance: LAPATINIB
  9. DEKRISTOL [Concomitant]
     Active Substance: CHOLECALCIFEROL
     Dosage: 20000 IE
  10. RAMIPRIL. [Concomitant]
     Active Substance: RAMIPRIL
     Dosage: 5 MG, 1-0-0-0
  11. FENTANYL. [Concomitant]
     Active Substance: FENTANYL
     Dosage: 12 UG
  12. GEMCITABINE. [Suspect]
     Active Substance: GEMCITABINE

REACTIONS (4)
  - Death [Fatal]
  - Abdominal pain [Unknown]
  - Constipation [Unknown]
  - Jaundice [Unknown]
